FAERS Safety Report 14759265 (Version 1)
Quarter: 2018Q2

REPORT INFORMATION
  Report Type: Spontaneous
  Country: TW (occurrence: TW)
  Receive Date: 20180413
  Receipt Date: 20180413
  Transmission Date: 20180711
  Serious: Yes (Death, Hospitalization, Other)
  Sender: FDA-Public Use
  Company Number: TW-IMPAX LABORATORIES, INC-2018-IPXL-01160

PATIENT
  Age: 37 Year
  Sex: Female

DRUGS (1)
  1. DESMOPRESSIN ACETATE IR [Suspect]
     Active Substance: DESMOPRESSIN ACETATE
     Indication: DIABETES INSIPIDUS
     Dosage: UNK
     Route: 065

REACTIONS (5)
  - Coma [Not Recovered/Not Resolved]
  - Septic shock [Fatal]
  - Osmotic demyelination syndrome [Fatal]
  - Multiple organ dysfunction syndrome [Fatal]
  - Drug effect incomplete [Unknown]
